FAERS Safety Report 4740930-4 (Version None)
Quarter: 2005Q3

REPORT INFORMATION
  Report Type: 
  Country: None (occurrence: None)
  Receive Date: 20050808
  Receipt Date: 20050801
  Transmission Date: 20060218
  Serious: Yes (Life-Threatening, Hospitalization)
  Sender: FDA-Public Use
  Company Number: 2005-03-1716

PATIENT
  Age: 50 Year
  Sex: Male
  Weight: 100.2449 kg

DRUGS (1)
  1. INTRON A [Suspect]
     Indication: MALIGNANT MELANOMA
     Dosage: 40 MIU INTRAVENOUS
     Route: 042
     Dates: start: 20050314, end: 20050318

REACTIONS (7)
  - ACUTE RESPIRATORY DISTRESS SYNDROME [None]
  - DYSPNOEA [None]
  - HYPERSENSITIVITY [None]
  - HYPOXIA [None]
  - NAUSEA [None]
  - PNEUMONITIS [None]
  - PYREXIA [None]
